FAERS Safety Report 9401490 (Version 2)
Quarter: 2013Q3

REPORT INFORMATION
  Report Type: Spontaneous
  Country: US (occurrence: US)
  Receive Date: 20130716
  Receipt Date: 20130808
  Transmission Date: 20140515
  Serious: No
  Sender: FDA-Public Use
  Company Number: US-009507513-1307USA006910

PATIENT
  Age: 52 Year
  Sex: Male
  Weight: 70.3 kg

DRUGS (5)
  1. PEGINTRON [Suspect]
     Dosage: DOSE: 120MCG/0.5 ML
     Route: 058
  2. LEVOTHYROXINE SODIUM [Concomitant]
  3. NAPROXEN [Concomitant]
     Dosage: 250 MG, UNK
  4. OMEGA-3 MARINE TRIGLYCERIDES [Concomitant]
  5. VITAMINS (UNSPECIFIED) [Concomitant]

REACTIONS (5)
  - Bone pain [Unknown]
  - Tinnitus [Unknown]
  - Chills [Unknown]
  - Decreased appetite [Unknown]
  - Fatigue [Unknown]
